FAERS Safety Report 15838058 (Version 1)
Quarter: 2019Q1

REPORT INFORMATION
  Report Type: Spontaneous
  Country: US (occurrence: US)
  Receive Date: 20190117
  Receipt Date: 20190117
  Transmission Date: 20190417
  Serious: No
  Sender: FDA-Public Use
  Company Number: US-DUSA PHARMACEUTICALS, INC.-2061341

PATIENT
  Sex: Female

DRUGS (2)
  1. BLU-U LIGHT (BLU-U BLUE LIGHT PHOTODYNAMIC THERAPY ILLUMINATOR) [Suspect]
     Active Substance: DEVICE
  2. LEVULAN KERASTICK [Suspect]
     Active Substance: AMINOLEVULINIC ACID HYDROCHLORIDE
     Indication: SKIN CANCER
     Route: 061
     Dates: start: 20180921, end: 20180921

REACTIONS (13)
  - Malaise [Unknown]
  - Malaise [None]
  - Pharyngeal oedema [None]
  - Erythema [None]
  - Throat tightness [Unknown]
  - Dysphagia [None]
  - Wrong technique in product usage process [Unknown]
  - Therapeutic response unexpected [None]
  - Nonspecific reaction [None]
  - Off label use [Unknown]
  - Blood glucose increased [Unknown]
  - Nausea [None]
  - Fatigue [Unknown]

NARRATIVE: CASE EVENT DATE: 2018
